FAERS Safety Report 10011846 (Version 1)
Quarter: 2014Q1

REPORT INFORMATION
  Report Type: Spontaneous
  Country: US (occurrence: None)
  Receive Date: 20140312
  Receipt Date: 20140312
  Transmission Date: 20141002
  Serious: Yes (Hospitalization)
  Sender: FDA-Public Use
  Company Number: UTC-045488

PATIENT
  Age: 56 Year
  Sex: Male
  Weight: 92.3 kg

DRUGS (3)
  1. REMODULIN [Suspect]
     Indication: PULMONARY ARTERIAL HYPERTENSION
     Dosage: 0.047 UG/KG, 1 IN 1 MIN
     Route: 058
     Dates: start: 20130123
  2. VICODIN [Suspect]
     Indication: PAIN
  3. WARFARIN [Concomitant]

REACTIONS (5)
  - Arthralgia [None]
  - Road traffic accident [None]
  - Confusional state [None]
  - Device dislocation [None]
  - Drug dose omission [None]
